FAERS Safety Report 20018762 (Version 1)
Quarter: 2021Q4

REPORT INFORMATION
  Report Type: Spontaneous
  Country: IT (occurrence: IT)
  Receive Date: 20211101
  Receipt Date: 20211101
  Transmission Date: 20220303
  Serious: Yes (Life-Threatening)
  Sender: FDA-Public Use
  Company Number: None

PATIENT
  Age: 45 Year
  Sex: Male

DRUGS (1)
  1. BRIDION [Suspect]
     Active Substance: SUGAMMADEX
     Indication: Neuromuscular blockade reversal
     Dosage: 200 MILLIGRAM; TOTAL
     Route: 042
     Dates: start: 20210831, end: 20210831

REACTIONS (2)
  - Cardiac arrest [Unknown]
  - Bradycardia [Unknown]

NARRATIVE: CASE EVENT DATE: 20210831
